FAERS Safety Report 7032862-6 (Version None)
Quarter: 2010Q4

REPORT INFORMATION
  Report Type: 
  Country: None (occurrence: None)
  Receive Date: 20101004
  Receipt Date: 20100923
  Transmission Date: 20110411
  Serious: Yes (Life-Threatening, Hospitalization)
  Sender: FDA-Public Use
  Company Number: 704672

PATIENT
  Age: 50 Year
  Sex: Female
  Weight: 59.3 kg

DRUGS (2)
  1. CARBOPLATIN [Suspect]
     Indication: OVARIAN CANCER
     Dosage: 570 MG, Q21D, INTRAVENOUS DRIP
     Route: 041
     Dates: start: 20100921, end: 20100921
  2. TAXOL [Concomitant]

REACTIONS (2)
  - ANAPHYLACTIC REACTION [None]
  - LOSS OF CONSCIOUSNESS [None]
